FAERS Safety Report 25877973 (Version 1)
Quarter: 2025Q4

REPORT INFORMATION
  Report Type: Spontaneous
  Country: EU (occurrence: EU)
  Receive Date: 20251003
  Receipt Date: 20251003
  Transmission Date: 20260117
  Serious: Yes (Other)
  Sender: SANOFI AVENTIS
  Company Number: EU-SA-2018SA107284

PATIENT
  Age: 63 Year
  Sex: Male

DRUGS (2)
  1. OXALIPLATIN [Suspect]
     Active Substance: OXALIPLATIN
     Indication: Mixed adenoneuroendocrine carcinoma
     Dosage: UNK UNK,QCY
     Route: 065
  2. CAPECITABINE [Suspect]
     Active Substance: CAPECITABINE
     Indication: Mixed adenoneuroendocrine carcinoma
     Dosage: UNK UNK,QCY
     Route: 065

REACTIONS (2)
  - Neoplasm progression [Unknown]
  - Neuropathy peripheral [Unknown]
